FAERS Safety Report 21494348 (Version 1)
Quarter: 2022Q4

REPORT INFORMATION
  Report Type: Spontaneous
  Country: US (occurrence: US)
  Receive Date: 20221021
  Receipt Date: 20221021
  Transmission Date: 20230112
  Serious: No
  Sender: FDA-Public Use
  Company Number: US-SANOFI-01321188

PATIENT
  Age: 6 Year
  Sex: Female
  Weight: 10 kg

DRUGS (1)
  1. LUMIZYME [Suspect]
     Active Substance: ALGLUCOSIDASE ALFA
     Indication: Glycogen storage disease type II
     Dosage: 200 MG QOW

REACTIONS (1)
  - Gender reassignment therapy [Unknown]

NARRATIVE: CASE EVENT DATE: 20210101
